FAERS Safety Report 7511856-8 (Version None)
Quarter: 2011Q2

REPORT INFORMATION
  Report Type: 
  Country: None (occurrence: None)
  Receive Date: 20110531
  Receipt Date: 20110523
  Transmission Date: 20111010
  Serious: Yes (Other)
  Sender: FDA-Public Use
  Company Number: US-PFIZER INC-2011111706

PATIENT
  Sex: Female
  Weight: 54 kg

DRUGS (4)
  1. PREMARIN [Suspect]
     Indication: HORMONE REPLACEMENT THERAPY
     Dosage: UNK
     Route: 048
  2. XANAX [Concomitant]
     Indication: SLEEP DISORDER
     Dosage: 0.5 MG, UNK
     Route: 048
  3. PREMARIN [Suspect]
     Dosage: 0.3 MG, 1X/DAY
     Route: 048
  4. MEDROXYPROGESTERONE ACETATE [Suspect]
     Indication: HORMONE REPLACEMENT THERAPY
     Dosage: UNK
     Route: 048

REACTIONS (13)
  - MALAISE [None]
  - PAIN [None]
  - GAIT DISTURBANCE [None]
  - MYALGIA [None]
  - ASTHENIA [None]
  - BONE DENSITY DECREASED [None]
  - FEELING ABNORMAL [None]
  - NIGHT SWEATS [None]
  - BONE PAIN [None]
  - SLEEP DISORDER [None]
  - OSTEOPENIA [None]
  - FATIGUE [None]
  - ARTHRALGIA [None]
